FAERS Safety Report 8462258-1 (Version None)
Quarter: 2012Q2

REPORT INFORMATION
  Report Type: 
  Country: None (occurrence: None)
  Receive Date: 20120625
  Receipt Date: 20120614
  Transmission Date: 20120825
  Serious: Yes (Death, Hospitalization)
  Sender: FDA-Public Use
  Company Number: AR-TEVA-344241ISR

PATIENT
  Sex: Male

DRUGS (2)
  1. UNKNOWN ANTIBIOTIC THERAPY [Suspect]
     Indication: RESPIRATORY TRACT INFECTION
  2. COPAXONE [Suspect]
     Indication: MULTIPLE SCLEROSIS
     Dosage: 20 MILLIGRAM;
     Route: 058
     Dates: start: 20070401, end: 20120502

REACTIONS (1)
  - PNEUMONIA ASPIRATION [None]
